FAERS Safety Report 5908858-1 (Version None)
Quarter: 2008Q4

REPORT INFORMATION
  Report Type: 
  Country: None (occurrence: None)
  Receive Date: 20081006
  Receipt Date: 20080924
  Transmission Date: 20090506
  Serious: Yes (Hospitalization)
  Sender: FDA-Public Use
  Company Number: GR-NOVOPROD-279208

PATIENT
  Age: 15 Year
  Sex: Male
  Weight: 65 kg

DRUGS (5)
  1. NOVOSEVEN [Suspect]
     Indication: HAEMOPHILIA A WITH ANTI FACTOR VIII
     Dosage: 270 UG/KG, UNK
     Route: 042
     Dates: start: 20080228, end: 20080723
  2. NOVOSEVEN [Suspect]
     Dosage: 3 TIMES WEEKLY
     Route: 042
     Dates: start: 20080724, end: 20080827
  3. NOVOSEVEN [Suspect]
     Dosage: 7.2 MG, UNK
     Route: 042
     Dates: start: 20080827, end: 20080902
  4. AUGMENTIN '125' [Concomitant]
     Dosage: 3 G, QD
     Route: 042
     Dates: start: 20080901, end: 20080904
  5. CLAFORAN [Concomitant]
     Dosage: 3 G, QD
     Route: 042
     Dates: start: 20080905, end: 20080909

REACTIONS (1)
  - HAEMATURIA [None]
